FAERS Safety Report 16468541 (Version 1)
Quarter: 2019Q2

REPORT INFORMATION
  Report Type: Spontaneous
  Country: GB (occurrence: GB)
  Receive Date: 20190624
  Receipt Date: 20190624
  Transmission Date: 20190711
  Serious: Yes (Life-Threatening, Hospitalization, Disabling, Other)
  Sender: FDA-Public Use
  Company Number: GB-ACCORD-134286

PATIENT
  Age: 45 Year
  Sex: Female
  Weight: 82.55 kg

DRUGS (7)
  1. THIAMINE. [Suspect]
     Active Substance: THIAMINE
     Route: 048
     Dates: start: 20190401
  2. THIAMINE. [Suspect]
     Active Substance: THIAMINE
     Indication: PRODUCT USED FOR UNKNOWN INDICATION
     Route: 048
     Dates: start: 20190402
  3. ACAMPROSATE/ACAMPROSATE CALCIUM [Suspect]
     Active Substance: ACAMPROSATE CALCIUM
     Indication: APHASIA
     Route: 048
     Dates: start: 20190402
  4. OLANZAPINE. [Suspect]
     Active Substance: OLANZAPINE
     Indication: DEPRESSION SUICIDAL
     Route: 048
     Dates: start: 20150307
  5. DULOXETINE/DULOXETINE HYDROCHLORIDE [Suspect]
     Active Substance: DULOXETINE HYDROCHLORIDE
     Route: 048
     Dates: start: 20181101
  6. DIAZEPAM. [Suspect]
     Active Substance: DIAZEPAM
     Indication: DEPRESSION SUICIDAL
     Route: 048
     Dates: start: 20150307
  7. RAMIPRIL. [Suspect]
     Active Substance: RAMIPRIL
     Indication: HYPERTENSION
     Dosage: MORNING AS DIRECTED BY HOSPITAL
     Route: 048
     Dates: start: 20150307

REACTIONS (3)
  - Suicidal ideation [Not Recovered/Not Resolved]
  - Suicide attempt [Unknown]
  - Neglect of personal appearance [Not Recovered/Not Resolved]

NARRATIVE: CASE EVENT DATE: 20150307
